FAERS Safety Report 6735499-9 (Version None)
Quarter: 2010Q2

REPORT INFORMATION
  Report Type: 
  Country: None (occurrence: None)
  Receive Date: 20100521
  Receipt Date: 20100510
  Transmission Date: 20101027
  Serious: Yes (Death)
  Sender: FDA-Public Use
  Company Number: US-BRISTOL-MYERS SQUIBB COMPANY-15113541

PATIENT
  Age: 47 Year
  Sex: Female

DRUGS (7)
  1. OXYMORPHONE [Suspect]
     Dosage: 0.05 MG/L
  2. TRAZODONE HCL [Suspect]
  3. ALCOHOL [Suspect]
  4. FLUOXETINE [Suspect]
     Dosage: 1 DOSAGE FORM = 0.18 MG/L
  5. METAMFETAMINE HCL [Suspect]
  6. SERTRALINE HCL [Suspect]
  7. BUPROPION HCL [Suspect]

REACTIONS (1)
  - DRUG TOXICITY [None]
